FAERS Safety Report 8263708-6 (Version None)
Quarter: 2012Q2

REPORT INFORMATION
  Report Type: 
  Country: None (occurrence: None)
  Receive Date: 20120405
  Receipt Date: 20120321
  Transmission Date: 20120825
  Serious: Yes (Other)
  Sender: FDA-Public Use
  Company Number: US-ROCHE-1051086

PATIENT
  Age: 8 Year
  Sex: Female

DRUGS (2)
  1. VALCYTE [Suspect]
     Indication: CYTOMEGALOVIRUS CHORIORETINITIS
     Route: 065
  2. CYTOVENE [Suspect]
     Indication: CYTOMEGALOVIRUS CHORIORETINITIS
     Route: 042

REACTIONS (7)
  - HEPATIC FUNCTION ABNORMAL [None]
  - DEVICE OCCLUSION [None]
  - TREATMENT FAILURE [None]
  - CHOLANGITIS SCLEROSING [None]
  - DIARRHOEA [None]
  - CYTOMEGALOVIRUS CHORIORETINITIS [None]
  - BK VIRUS INFECTION [None]
